FAERS Safety Report 21028023 (Version 2)
Quarter: 2023Q1

REPORT INFORMATION
  Report Type: Spontaneous
  Country: US (occurrence: US)
  Receive Date: 20220630
  Receipt Date: 20230216
  Transmission Date: 20230417
  Serious: No
  Sender: FDA-Public Use
  Company Number: US-MYLANLABS-2022M1039121

PATIENT
  Age: 67 Year
  Sex: Female
  Weight: 70.31 kg

DRUGS (2)
  1. ESTRADIOL [Suspect]
     Active Substance: ESTRADIOL
     Indication: Bladder prolapse
     Dosage: 0.01 PERCENT, TWICE WEEKLY
     Route: 067
     Dates: start: 20220126, end: 20220522
  2. ESTRADIOL [Suspect]
     Active Substance: ESTRADIOL
     Indication: Vaginal prolapse

REACTIONS (3)
  - Vulvovaginal burning sensation [Recovering/Resolving]
  - Discomfort [Not Recovered/Not Resolved]
  - Off label use [Unknown]

NARRATIVE: CASE EVENT DATE: 20220126
